FAERS Safety Report 23070227 (Version 1)
Quarter: 2023Q4

REPORT INFORMATION
  Report Type: Spontaneous
  Country: US (occurrence: US)
  Receive Date: 20231016
  Receipt Date: 20231016
  Transmission Date: 20240109
  Serious: No
  Sender: FDA-Public Use
  Company Number: US-BAYER-2023A139672

PATIENT
  Age: 67 Year
  Sex: Male

DRUGS (1)
  1. NUBEQA [Suspect]
     Active Substance: DAROLUTAMIDE
     Indication: Prostate cancer
     Dosage: 600 MG, BID
     Route: 048

REACTIONS (4)
  - Vision blurred [None]
  - Abdominal pain upper [None]
  - Weight decreased [None]
  - Diarrhoea [None]

NARRATIVE: CASE EVENT DATE: 20231002
